FAERS Safety Report 9733104 (Version 1)
Quarter: 2013Q4

REPORT INFORMATION
  Report Type: Spontaneous
  Country: JP (occurrence: JP)
  Receive Date: 20131205
  Receipt Date: 20131205
  Transmission Date: 20140711
  Serious: Yes (Other)
  Sender: FDA-Public Use
  Company Number: PHHY2013JP135624

PATIENT
  Age: 23 Year
  Sex: Female

DRUGS (9)
  1. ACICLOVIR [Suspect]
     Indication: HERPES ZOSTER
     Dosage: 750 MG, PER DAY
  2. ACICLOVIR [Suspect]
     Indication: INFECTION PROPHYLAXIS
     Dosage: 200 MG, PER DAY
     Route: 048
  3. TACROLIMUS [Suspect]
     Indication: PROPHYLAXIS AGAINST GRAFT VERSUS HOST DISEASE
  4. LANSOPRAZOLE [Suspect]
     Indication: PROPHYLAXIS
  5. VORICONAZOLE [Suspect]
     Indication: PROPHYLAXIS
  6. REBAMIPIDE [Suspect]
     Indication: PROPHYLAXIS
  7. METHOTREXATE [Concomitant]
     Indication: PROPHYLAXIS AGAINST GRAFT VERSUS HOST DISEASE
  8. PREDNISOLONE [Concomitant]
     Dosage: 1 MG/KG, UNK
  9. PREDNISOLONE [Concomitant]
     Dosage: 0.75 MG/KG, UNK

REACTIONS (4)
  - Drug-induced liver injury [Recovered/Resolved]
  - Hepatitis acute [Unknown]
  - Jaundice [Unknown]
  - Drug interaction [Unknown]
